FAERS Safety Report 12153344 (Version 1)
Quarter: 2016Q1

REPORT INFORMATION
  Report Type: Spontaneous
  Country: FR (occurrence: FR)
  Receive Date: 20160306
  Receipt Date: 20160306
  Transmission Date: 20160526
  Serious: Yes (Hospitalization)
  Sender: FDA-Public Use
  Company Number: FR-HOSPIRA-3188654

PATIENT
  Age: 54 Year
  Sex: Female

DRUGS (2)
  1. GEMCITABINE HYDROCHLORIDE. [Suspect]
     Active Substance: GEMCITABINE HYDROCHLORIDE
     Indication: OVARIAN CANCER STAGE III
     Dosage: BY COURSE
     Route: 042
     Dates: start: 20150817, end: 20150902
  2. OXALIPLATINE HOSPIRA [Suspect]
     Active Substance: OXALIPLATIN
     Indication: OVARIAN CANCER STAGE III
     Dosage: BY COURSE
     Route: 042
     Dates: start: 20150817, end: 20150902

REACTIONS (5)
  - Paraesthesia [Recovered/Resolved]
  - Sense of oppression [Recovered/Resolved]
  - Laryngospasm [Recovered/Resolved]
  - Dizziness [Recovered/Resolved]
  - Dyspnoea [Recovered/Resolved]

NARRATIVE: CASE EVENT DATE: 20150902
